FAERS Safety Report 9961841 (Version 2)
Quarter: 2014Q1

REPORT INFORMATION
  Report Type: Report from Study
  Country: PR (occurrence: PR)
  Receive Date: 20140305
  Receipt Date: 20140305
  Transmission Date: 20141002
  Serious: No
  Sender: FDA-Public Use
  Company Number: PR-ABBVIE-12P-131-1018629-00

PATIENT
  Sex: Female

DRUGS (8)
  1. HUMIRA [Suspect]
     Indication: RHEUMATOID ARTHRITIS
     Route: 058
     Dates: end: 201211
  2. HUMIRA [Suspect]
     Route: 058
     Dates: start: 201304
  3. FOSAMAX [Concomitant]
     Indication: PRODUCT USED FOR UNKNOWN INDICATION
     Route: 048
  4. GLUCOTROL [Concomitant]
     Indication: DIABETES MELLITUS
     Route: 048
  5. FOLIC ACID [Concomitant]
     Indication: RHEUMATOID ARTHRITIS
     Route: 048
  6. ASPIRIN [Concomitant]
     Indication: PAIN
     Route: 048
  7. CALTRATE D [Concomitant]
     Indication: RHEUMATOID ARTHRITIS
     Route: 048
  8. SIMVASTATIN [Concomitant]
     Route: 048

REACTIONS (3)
  - Feeling abnormal [Unknown]
  - Arthralgia [Recovered/Resolved]
  - Asthma [Recovered/Resolved]
